FAERS Safety Report 4800251-8 (Version None)
Quarter: 2005Q4

REPORT INFORMATION
  Report Type: 
  Country: None (occurrence: None)
  Receive Date: 20051017
  Receipt Date: 20050228
  Transmission Date: 20060501
  Serious: No
  Sender: FDA-Public Use
  Company Number: US-GLAXOSMITHKLINE-A0547556A

PATIENT
  Age: 9 Year
  Sex: Male

DRUGS (1)
  1. CEFTIN [Suspect]
     Dosage: 1TBS TWICE PER DAY
     Route: 048
     Dates: start: 20050221

REACTIONS (2)
  - DIARRHOEA [None]
  - NAUSEA [None]
